FAERS Safety Report 22604382 (Version 1)
Quarter: 2023Q2

REPORT INFORMATION
  Report Type: Spontaneous
  Country: JP (occurrence: JP)
  Receive Date: 20230615
  Receipt Date: 20230615
  Transmission Date: 20230722
  Serious: Yes (Other)
  Sender: FDA-Public Use
  Company Number: None

PATIENT
  Age: 1 Decade
  Sex: Female

DRUGS (14)
  1. LEVETIRACETAM [Suspect]
     Active Substance: LEVETIRACETAM
     Indication: Holoprosencephaly
     Dosage: 300 MG,  UNK
  2. LEVETIRACETAM [Suspect]
     Active Substance: LEVETIRACETAM
     Indication: Epilepsy
  3. DIAZEPAM [Suspect]
     Active Substance: DIAZEPAM
     Indication: Holoprosencephaly
     Dosage: 3 MG,  UNK
     Route: 054
  4. DIAZEPAM [Suspect]
     Active Substance: DIAZEPAM
     Indication: Tonic convulsion
  5. NITRAZEPAM [Suspect]
     Active Substance: NITRAZEPAM
     Indication: Holoprosencephaly
     Dosage: 1.2 MG,  UNK
  6. NITRAZEPAM [Suspect]
     Active Substance: NITRAZEPAM
     Indication: Tonic convulsion
     Dosage: 2 MG,  UNK
  7. CLONAZEPAM [Suspect]
     Active Substance: CLONAZEPAM
     Indication: Tonic convulsion
     Dosage: 0.4 MG,  UNK
  8. CLONAZEPAM [Suspect]
     Active Substance: CLONAZEPAM
     Indication: Holoprosencephaly
  9. ZONISAMIDE [Suspect]
     Active Substance: ZONISAMIDE
     Indication: Holoprosencephaly
     Dosage: 60 MG,  UNK
  10. ZONISAMIDE [Suspect]
     Active Substance: ZONISAMIDE
     Indication: Epilepsy
  11. PHENOBARBITAL [Suspect]
     Active Substance: PHENOBARBITAL
     Indication: Holoprosencephaly
     Dosage: 50 MG,  UNK
  12. PHENOBARBITAL [Suspect]
     Active Substance: PHENOBARBITAL
     Indication: Status epilepticus
  13. CHLORAL HYDRATE [Concomitant]
     Active Substance: CHLORAL HYDRATE
     Indication: Tonic convulsion
     Dosage: UNK, UNK
  14. CHLORAL HYDRATE [Concomitant]
     Active Substance: CHLORAL HYDRATE
     Indication: Holoprosencephaly

REACTIONS (2)
  - Somnolence [Recovered/Resolved]
  - Loss of consciousness [Recovered/Resolved]
